FAERS Safety Report 7800363-0 (Version None)
Quarter: 2011Q4

REPORT INFORMATION
  Report Type: 
  Country: None (occurrence: None)
  Receive Date: 20111004
  Receipt Date: 20110921
  Transmission Date: 20120403
  Serious: Yes (Other)
  Sender: FDA-Public Use
  Company Number: DSA_47721_2011

PATIENT
  Age: 58 Year
  Sex: Female

DRUGS (2)
  1. BUPROPION HYDROCHLORIDE [Suspect]
     Indication: PRODUCT USED FOR UNKNOWN INDICATION
     Dosage: (150 MG, FREQUENCY UNKNOWN ORAL) ; (ORAL)
     Route: 048
     Dates: start: 20110601
  2. BUPROPION HYDROCHLORIDE [Suspect]
     Indication: PRODUCT USED FOR UNKNOWN INDICATION
     Dosage: (150 MG, FREQUENCY UNKNOWN ORAL) ; (ORAL)
     Route: 048
     Dates: start: 20100101

REACTIONS (3)
  - DEPRESSION [None]
  - SUICIDAL IDEATION [None]
  - DRUG DISPENSING ERROR [None]
